FAERS Safety Report 10021309 (Version 1)
Quarter: 2014Q1

REPORT INFORMATION
  Report Type: Spontaneous
  Country: US (occurrence: US)
  Receive Date: 20140319
  Receipt Date: 20140319
  Transmission Date: 20141002
  Serious: No
  Sender: FDA-Public Use
  Company Number: PHEH2014US005216

PATIENT
  Sex: Female

DRUGS (10)
  1. TASIGNA [Suspect]
     Dosage: 300 MG, BID
     Route: 048
     Dates: start: 2012
  2. SPRYCEL//DASATINIB [Concomitant]
     Dosage: 100 MG, QD
     Route: 048
     Dates: start: 20140308
  3. SYNTHROID [Concomitant]
     Dosage: 175 UG, QD
     Route: 048
  4. TAMOXIFEN [Concomitant]
     Dosage: 20 MG, QD
     Route: 048
  5. PREDNISONE [Concomitant]
     Dosage: 5 MG, QD
     Route: 048
  6. LISINOPRIL [Concomitant]
     Dosage: 20 MG, QD
     Route: 048
  7. CYMBALTA [Concomitant]
     Dosage: 30 MG, HS
     Route: 048
  8. WELLBUTRIN [Concomitant]
     Dosage: 150 MG, QD
     Route: 048
  9. PRO-AIR [Concomitant]
     Dosage: 2 PUFFS PRN
     Route: 055
  10. VENTOLIN                           /00942701/ [Concomitant]
     Dosage: 2 PUFFS PRN
     Route: 055

REACTIONS (3)
  - Nausea [Recovering/Resolving]
  - Vomiting [Recovering/Resolving]
  - Bone pain [Not Recovered/Not Resolved]
